FAERS Safety Report 8211628-5 (Version None)
Quarter: 2012Q1

REPORT INFORMATION
  Report Type: 
  Country: None (occurrence: None)
  Receive Date: 20120315
  Receipt Date: 20120306
  Transmission Date: 20120608
  Serious: Yes (Other)
  Sender: FDA-Public Use
  Company Number: US-SANOFI-AVENTIS-2012SA014020

PATIENT
  Age: 50 Year
  Sex: Female

DRUGS (5)
  1. ACETYLSALICYLIC ACID SRT [Suspect]
     Dosage: LOADING DOSE
     Route: 065
  2. ACETYLSALICYLIC ACID SRT [Suspect]
     Dosage: MAINTAINANCE DOSE
     Route: 065
  3. HEPARIN [Suspect]
     Indication: STENT PLACEMENT
     Dosage: BOLUS
     Route: 042
  4. ATENOLOL AND CHLORTHALIDONE [Suspect]
     Route: 065
  5. ATENOLOL AND CHLORTHALIDONE [Suspect]
     Dosage: LOADING DOSE
     Route: 065

REACTIONS (9)
  - HAEMODYNAMIC INSTABILITY [None]
  - APHASIA [None]
  - ARTERIAL HAEMORRHAGE [None]
  - CEREBRAL INFARCTION [None]
  - THROMBOSIS IN DEVICE [None]
  - GRAND MAL CONVULSION [None]
  - OFF LABEL USE [None]
  - HEMIPLEGIA [None]
  - HYPERTENSION [None]
